FAERS Safety Report 9299037 (Version 1)
Quarter: 2013Q2

REPORT INFORMATION
  Report Type: Spontaneous
  Country: US (occurrence: US)
  Receive Date: 20130520
  Receipt Date: 20130520
  Transmission Date: 20140414
  Serious: No
  Sender: FDA-Public Use
  Company Number: US-TEVA-405834USA

PATIENT
  Age: 39 Year
  Sex: Female

DRUGS (1)
  1. COPAXONE [Suspect]
     Indication: RELAPSING-REMITTING MULTIPLE SCLEROSIS
     Dosage: 20

REACTIONS (4)
  - Injection site reaction [Recovered/Resolved]
  - Pain [Recovered/Resolved]
  - Injection site vesicles [Recovered/Resolved]
  - Injection site scar [Not Recovered/Not Resolved]
